FAERS Safety Report 9549634 (Version 2)
Quarter: 2013Q4

REPORT INFORMATION
  Report Type: Spontaneous
  Country: US (occurrence: US)
  Receive Date: 20130924
  Receipt Date: 20131216
  Transmission Date: 20140711
  Serious: Yes (Other)
  Sender: FDA-Public Use
  Company Number: US-ELI_LILLY_AND_COMPANY-US201309005426

PATIENT
  Sex: Female
  Weight: 71.66 kg

DRUGS (16)
  1. EVISTA [Suspect]
     Indication: OSTEOPENIA
     Dosage: 60 MG, QD
     Dates: end: 2013
  2. SINGULAIR [Concomitant]
  3. LIPITOR [Concomitant]
  4. ADVAIR [Concomitant]
  5. ALBUTEROL                          /00139501/ [Concomitant]
  6. XOPENEX HFA [Concomitant]
  7. FLONASE [Concomitant]
  8. CITRACAL PLUS [Concomitant]
  9. IRON [Concomitant]
  10. ASA [Concomitant]
  11. ZYRTEC [Concomitant]
  12. CENTRUM SILVER                     /02363801/ [Concomitant]
  13. WOMENS ULTRA MEGA [Concomitant]
  14. VITAMIN C                          /00008001/ [Concomitant]
  15. POTASSIUM GLUCONATE [Concomitant]
  16. COLAZAL [Concomitant]

REACTIONS (1)
  - Invasive ductal breast carcinoma [Recovered/Resolved]
